FAERS Safety Report 24614180 (Version 1)
Quarter: 2024Q4

REPORT INFORMATION
  Report Type: Spontaneous
  Country: JP (occurrence: JP)
  Receive Date: 20241113
  Receipt Date: 20241113
  Transmission Date: 20250114
  Serious: Yes (Other)
  Sender: EISAI
  Company Number: JP-Eisai-202410103_LEN_P_1

PATIENT
  Age: 69 Year
  Sex: Female

DRUGS (1)
  1. LENVATINIB [Suspect]
     Active Substance: LENVATINIB
     Indication: Poorly differentiated thyroid carcinoma
     Route: 048

REACTIONS (2)
  - Interstitial lung disease [Recovering/Resolving]
  - Hypertension [Recovering/Resolving]
